FAERS Safety Report 26058103 (Version 1)
Quarter: 2025Q4

REPORT INFORMATION
  Report Type: Spontaneous
  Country: US (occurrence: US)
  Receive Date: 20251118
  Receipt Date: 20251118
  Transmission Date: 20260117
  Serious: No
  Sender: GILEAD
  Company Number: US-GILEAD-2025-0736775

PATIENT
  Age: 57 Year
  Sex: Female

DRUGS (3)
  1. LENACAPAVIR [Suspect]
     Active Substance: LENACAPAVIR
     Indication: HIV infection
     Dosage: 927MG UNDER THE SKIN EVERY 6 MONTHS
     Route: 065
     Dates: start: 202410
  2. UPTRAVI [Concomitant]
     Active Substance: SELEXIPAG
     Dosage: UNK
  3. UPTRAVI [Concomitant]
     Active Substance: SELEXIPAG
     Dosage: MD TITRATED DOWN AND BACK UP AND NOW CONTINUES AT MAINTENANCE DOSE

REACTIONS (1)
  - Illness [Unknown]
